FAERS Safety Report 20029577 (Version 1)
Quarter: 2021Q4

REPORT INFORMATION
  Report Type: Spontaneous
  Country: ES (occurrence: ES)
  Receive Date: 20211103
  Receipt Date: 20211103
  Transmission Date: 20220303
  Serious: Yes (Other)
  Sender: FDA-Public Use
  Company Number: ES-AMGEN-ESPSP2021169675

PATIENT
  Age: 35 Year
  Sex: Female

DRUGS (3)
  1. ARANESP [Suspect]
     Active Substance: DARBEPOETIN ALFA
     Indication: Friedreich^s ataxia
     Dosage: 150 MICROGRAM, Q2WK
     Route: 065
  2. IDEBENONE [Concomitant]
     Active Substance: IDEBENONE
     Indication: Friedreich^s ataxia
     Dosage: 405 MILLIGRAM, QD
  3. RIBOFLAVIN [Concomitant]
     Active Substance: RIBOFLAVIN
     Indication: Friedreich^s ataxia
     Dosage: 750 MILLIGRAM, QD

REACTIONS (2)
  - Ejection fraction decreased [Unknown]
  - Off label use [Unknown]
